FAERS Safety Report 8392622-0 (Version None)
Quarter: 2012Q2

REPORT INFORMATION
  Report Type: 
  Country: None (occurrence: None)
  Receive Date: 20120529
  Receipt Date: 20120521
  Transmission Date: 20120825
  Serious: Yes (Other)
  Sender: FDA-Public Use
  Company Number: PHHY2012JP044294

PATIENT
  Age: 72 Year
  Sex: Female

DRUGS (4)
  1. GEFITINIB [Suspect]
     Indication: LUNG ADENOCARCINOMA RECURRENT
  2. CARBOPLATIN [Suspect]
     Indication: LUNG ADENOCARCINOMA RECURRENT
  3. VINORELBINE [Suspect]
     Indication: LUNG ADENOCARCINOMA RECURRENT
  4. PACLITAXEL [Suspect]
     Indication: LUNG ADENOCARCINOMA RECURRENT

REACTIONS (2)
  - ACUTE MYELOID LEUKAEMIA [None]
  - PANCYTOPENIA [None]
